FAERS Safety Report 8934135 (Version 2)
Quarter: 2013Q4

REPORT INFORMATION
  Report Type: Spontaneous
  Country: US (occurrence: US)
  Receive Date: 20121129
  Receipt Date: 20131122
  Transmission Date: 20140711
  Serious: No
  Sender: FDA-Public Use
  Company Number: US-GLAXOSMITHKLINE-A0973393A

PATIENT
  Age: 48 Year
  Sex: Female

DRUGS (5)
  1. WELLBUTRIN SR [Suspect]
     Indication: DEPRESSION
     Dosage: 150MG TWICE PER DAY
     Route: 048
     Dates: start: 2006, end: 2006
  2. ADVAIR [Suspect]
     Indication: ASTHMA
     Route: 055
     Dates: start: 20100225
  3. PROTONIX [Concomitant]
  4. ALLEGRA [Concomitant]
  5. NEXIUM [Concomitant]

REACTIONS (3)
  - Drug ineffective [Unknown]
  - Influenza [Unknown]
  - Asthma [Unknown]
